FAERS Safety Report 5296844-7 (Version None)
Quarter: 2007Q2

REPORT INFORMATION
  Report Type: 
  Country: None (occurrence: None)
  Receive Date: 20070413
  Receipt Date: 20070403
  Transmission Date: 20071010
  Serious: Yes (Other)
  Sender: FDA-Public Use
  Company Number: GB-PFIZER INC-2007027637

PATIENT
  Age: 58 Year
  Sex: Male
  Weight: 98.4 kg

DRUGS (7)
  1. ATORVASTATIN CALCIUM [Suspect]
     Route: 048
  2. MINOCYCLINE HCL [Suspect]
     Indication: ROSACEA
     Route: 048
     Dates: start: 20020502, end: 20070319
  3. ALLOPURINOL [Concomitant]
     Indication: GOUT
     Dosage: DAILY DOSE:300MG-FREQ:DAILY
     Route: 048
  4. AMLODIPINE [Concomitant]
     Indication: ANGINA PECTORIS
     Dosage: DAILY DOSE:5MG-FREQ:DAILY
     Route: 048
     Dates: start: 20001108
  5. ATENOLOL [Concomitant]
     Dosage: DAILY DOSE:50MG-FREQ:DAILY
     Route: 048
     Dates: start: 20030506
  6. EZETIMIBE [Concomitant]
     Indication: HYPERLIPIDAEMIA
     Dosage: DAILY DOSE:10MG-FREQ:DAILY
     Route: 048
     Dates: start: 20040721
  7. LANSOPRAZOLE [Concomitant]
     Dosage: DAILY DOSE:15MG-FREQ:DAILY
     Route: 048
     Dates: start: 20020825

REACTIONS (2)
  - HEPATOTOXICITY [None]
  - LIVER FUNCTION TEST ABNORMAL [None]
